FAERS Safety Report 7891795-3 (Version None)
Quarter: 2011Q4

REPORT INFORMATION
  Report Type: 
  Country: None (occurrence: None)
  Receive Date: 20111103
  Receipt Date: 20110810
  Transmission Date: 20120403
  Serious: No
  Sender: FDA-Public Use
  Company Number: US-AMGEN-USASP2011040609

PATIENT
  Sex: Female

DRUGS (2)
  1. ENBREL [Suspect]
     Indication: PSORIASIS
  2. ENBREL [Suspect]
     Indication: PSORIATIC ARTHROPATHY
     Dates: start: 20040101, end: 20110501

REACTIONS (7)
  - ARTHRALGIA [None]
  - MOBILITY DECREASED [None]
  - OEDEMA PERIPHERAL [None]
  - SKIN LESION [None]
  - PAIN IN EXTREMITY [None]
  - IMPAIRED HEALING [None]
  - ONYCHOMADESIS [None]
